FAERS Safety Report 21119075 (Version 1)
Quarter: 2022Q3

REPORT INFORMATION
  Report Type: Spontaneous
  Country: DE (occurrence: DE)
  Receive Date: 20220722
  Receipt Date: 20220722
  Transmission Date: 20221026
  Serious: Yes (Other)
  Sender: FDA-Public Use
  Company Number: DE-STRIDES ARCOLAB LIMITED-2022SP009195

PATIENT
  Age: 30 Year
  Sex: Male

DRUGS (18)
  1. DOXORUBICIN [Suspect]
     Active Substance: DOXORUBICIN
     Indication: Hereditary motor and sensory neuropathy
     Dosage: 35 MILLIGRAM/SQ. METER, BEACOPP REGIMEN DAY 1
     Route: 065
  2. DOXORUBICIN [Suspect]
     Active Substance: DOXORUBICIN
     Indication: Hodgkin^s disease
  3. DOXORUBICIN [Suspect]
     Active Substance: DOXORUBICIN
     Indication: Epstein-Barr viraemia
  4. PREDNISOLONE [Suspect]
     Active Substance: PREDNISOLONE
     Indication: Hereditary motor and sensory neuropathy
     Dosage: 40 MILLIGRAM/SQ. METER, BEACOPP REGIMEN DAY 1-14
     Route: 065
  5. PREDNISOLONE [Suspect]
     Active Substance: PREDNISOLONE
     Indication: Hodgkin^s disease
  6. PREDNISOLONE [Suspect]
     Active Substance: PREDNISOLONE
     Indication: Epstein-Barr viraemia
  7. ETOPOSIDE [Suspect]
     Active Substance: ETOPOSIDE
     Indication: Hereditary motor and sensory neuropathy
     Dosage: 200 MILLIGRAM/SQ. METER, BEACOPP REGIMEN DAY 1-3
     Route: 065
  8. ETOPOSIDE [Suspect]
     Active Substance: ETOPOSIDE
     Indication: Hodgkin^s disease
  9. ETOPOSIDE [Suspect]
     Active Substance: ETOPOSIDE
     Indication: Epstein-Barr viraemia
  10. BLEOMYCIN [Suspect]
     Active Substance: BLEOMYCIN SULFATE
     Indication: Hereditary motor and sensory neuropathy
     Dosage: 10 MILLIGRAM/SQ. METER, BEACOPP REGIMEN ON DAY 8
     Route: 065
  11. BLEOMYCIN [Suspect]
     Active Substance: BLEOMYCIN SULFATE
     Indication: Hodgkin^s disease
  12. BLEOMYCIN [Suspect]
     Active Substance: BLEOMYCIN SULFATE
     Indication: Epstein-Barr viraemia
  13. CYCLOPHOSPHAMIDE [Suspect]
     Active Substance: CYCLOPHOSPHAMIDE
     Indication: Hereditary motor and sensory neuropathy
     Dosage: 1250 MILLIGRAM/SQ. METER, BEACOPP REGIMEN DAY 1
     Route: 065
  14. CYCLOPHOSPHAMIDE [Suspect]
     Active Substance: CYCLOPHOSPHAMIDE
     Indication: Hodgkin^s disease
  15. CYCLOPHOSPHAMIDE [Suspect]
     Active Substance: CYCLOPHOSPHAMIDE
     Indication: Epstein-Barr viraemia
  16. PROCARBAZINE [Suspect]
     Active Substance: PROCARBAZINE
     Indication: Hereditary motor and sensory neuropathy
     Dosage: 100 MILLIGRAM/SQ. METER, BEACOPP REGIMEN DAY 1-7
     Route: 065
  17. PROCARBAZINE [Suspect]
     Active Substance: PROCARBAZINE
     Indication: Hodgkin^s disease
  18. PROCARBAZINE [Suspect]
     Active Substance: PROCARBAZINE
     Indication: Epstein-Barr viraemia

REACTIONS (2)
  - Neurotoxicity [Recovered/Resolved]
  - Off label use [Unknown]
